FAERS Safety Report 9093562 (Version 4)
Quarter: 2013Q2

REPORT INFORMATION
  Report Type: Spontaneous
  Country: US (occurrence: US)
  Receive Date: 20130201
  Receipt Date: 20130520
  Transmission Date: 20140414
  Serious: Yes (Hospitalization, Other)
  Sender: FDA-Public Use
  Company Number: US-009507513-1204USA00479

PATIENT
  Sex: Female

DRUGS (6)
  1. FOSAMAX [Suspect]
     Indication: OSTEOPENIA
     Dosage: 10 MG, QD
     Route: 048
     Dates: start: 199509, end: 200110
  2. FOSAMAX [Suspect]
     Indication: OSTEOPOROSIS
     Dosage: 70 MG, QW
     Route: 048
     Dates: start: 200110, end: 200511
  3. FOSAMAX [Suspect]
     Dosage: 70 MG, QW
     Route: 048
     Dates: start: 200711, end: 200801
  4. FOSAMAX [Suspect]
     Dosage: 70 MG, QW
     Route: 048
     Dates: start: 200809, end: 20090529
  5. ALENDRONATE SODIUM [Suspect]
     Indication: OSTEOPENIA
     Dosage: 70 MG, QW
     Route: 048
     Dates: start: 200802, end: 200808
  6. ALENDRONATE SODIUM [Suspect]
     Indication: OSTEOPOROSIS

REACTIONS (20)
  - Intramedullary rod insertion [Unknown]
  - Knee arthroplasty [Unknown]
  - Breast cancer [Unknown]
  - Spinal operation [Unknown]
  - Knee arthroplasty [Unknown]
  - Femur fracture [Unknown]
  - Femur fracture [Unknown]
  - Lumbar vertebral fracture [Unknown]
  - Arthritis [Unknown]
  - Hypertension [Unknown]
  - Gastric pH decreased [Unknown]
  - Haemorrhagic anaemia [Unknown]
  - Osteoarthritis [Unknown]
  - Intervertebral disc degeneration [Not Recovered/Not Resolved]
  - Fall [Unknown]
  - Spondylolisthesis [Not Recovered/Not Resolved]
  - Pain [Unknown]
  - Device failure [Unknown]
  - Pollakiuria [Unknown]
  - Gastrooesophageal reflux disease [Unknown]
